FAERS Safety Report 8817025 (Version 3)
Quarter: 2014Q1

REPORT INFORMATION
  Report Type: Spontaneous
  Country: FR (occurrence: None)
  Receive Date: 20121002
  Receipt Date: 20140127
  Transmission Date: 20141002
  Serious: Yes (Hospitalization)
  Sender: FDA-Public Use
  Company Number: DSA_59878_2012

PATIENT
  Sex: Male

DRUGS (6)
  1. FLAGYL [Suspect]
     Indication: PRODUCT USED FOR UNKNOWN INDICATION
     Dosage: 350 MG TID INTRAVENOUS (NOT OTHERWISE SPECIFIED)
     Route: 042
     Dates: start: 20120817, end: 20120908
  2. KEPPRA [Suspect]
     Indication: CONVULSION
     Route: 048
     Dates: start: 20120821, end: 20120907
  3. VENOFER (SACCARATED IRON OXIDE) (SACCHARATED IRON OXIDE) [Concomitant]
     Indication: PRODUCT USED FOR UNKNOWN INDICATION
     Dosage: INTRAVENOUS (NOT OTHERWISE SPECIFIED)?
     Route: 042
  4. CLAFORAN (CEFOTAXIME SODIUM) (CEFOTAXIME SODIUM) [Concomitant]
  5. DUPHALAC/NET (LACTULOSE) (LACTULOSE) [Concomitant]
  6. PERFALGAN (PARACETAMOL) (PARACETAMOL) [Concomitant]

REACTIONS (10)
  - Drug reaction with eosinophilia and systemic symptoms [None]
  - Neutropenia [None]
  - Pyrexia [None]
  - General physical health deterioration [None]
  - Vomiting [None]
  - Inflammation [None]
  - Hepatitis [None]
  - Epstein-Barr virus test [None]
  - Cytomegalovirus test [None]
  - Anaemia [None]
